FAERS Safety Report 4898169-8 (Version None)
Quarter: 2006Q1

REPORT INFORMATION
  Report Type: 
  Country: None (occurrence: None)
  Receive Date: 20060127
  Receipt Date: 20060118
  Transmission Date: 20060701
  Serious: Yes (Other)
  Sender: FDA-Public Use
  Company Number: 2006-01-1042

PATIENT
  Sex: Male

DRUGS (2)
  1. PEG-INTRON [Suspect]
     Indication: HEPATITIS C
     Dosage: SUBCUTANEOUS
     Route: 058
     Dates: start: 20020401, end: 20040101
  2. REBETOL [Suspect]
     Indication: HEPATITIS C
     Dosage: ORAL
     Route: 048
     Dates: start: 20020401, end: 20030601

REACTIONS (5)
  - AMNESIA [None]
  - DISEASE RECURRENCE [None]
  - EYE DISORDER [None]
  - HAEMANGIOMA [None]
  - MACULAR DEGENERATION [None]
